FAERS Safety Report 18679657 (Version 2)
Quarter: 2021Q2

REPORT INFORMATION
  Report Type: Report from Study
  Country: CA (occurrence: CA)
  Receive Date: 20201229
  Receipt Date: 20210628
  Transmission Date: 20210717
  Serious: Yes (Hospitalization)
  Sender: FDA-Public Use
  Company Number: CA-JNJFOC-20201110983

PATIENT
  Sex: Female

DRUGS (1)
  1. STELARA [Suspect]
     Active Substance: USTEKINUMAB
     Indication: CROHN^S DISEASE
     Route: 058
     Dates: start: 20200512

REACTIONS (7)
  - Screaming [Unknown]
  - Scab [Unknown]
  - Patient uncooperative [Unknown]
  - Hospitalisation [Unknown]
  - Anxiety [Unknown]
  - Crying [Unknown]
  - Anger [Unknown]
